FAERS Safety Report 12147742 (Version 1)
Quarter: 2016Q1

REPORT INFORMATION
  Report Type: Spontaneous
  Country: PT (occurrence: PT)
  Receive Date: 20160304
  Receipt Date: 20160304
  Transmission Date: 20160526
  Serious: Yes (Disabling, Other)
  Sender: FDA-Public Use
  Company Number: PT-BRISTOL-MYERS SQUIBB COMPANY-21246848

PATIENT
  Age: 76 Year
  Sex: Male
  Weight: 48 kg

DRUGS (6)
  1. ORADEXON                           /00016001/ [Concomitant]
     Indication: PREMEDICATION
     Dosage: 20 MG, QWK
     Route: 042
     Dates: start: 20140519
  2. CLORETO DE SODIO [Concomitant]
     Indication: MEDICATION DILUTION
     Dosage: 500 ML, UNK
     Dates: start: 20140616
  3. TAVIST ALLERGY [Concomitant]
     Active Substance: CLEMASTINE FUMARATE
     Indication: PREMEDICATION
     Dosage: 2 MG, QWK
     Route: 042
     Dates: start: 20140519
  4. PACLITAXEL. [Concomitant]
     Active Substance: PACLITAXEL
     Indication: OROPHARYNGEAL CANCER
     Dosage: 257.30 MG, QCYCLE
     Route: 042
     Dates: start: 20140220, end: 20140421
  5. ERBITUX [Suspect]
     Active Substance: CETUXIMAB
     Indication: HEAD AND NECK CANCER
     Dosage: 367.5 MG, QCYCLE
     Route: 040
     Dates: start: 20140616, end: 20140623
  6. CARBOPLATIN. [Concomitant]
     Active Substance: CARBOPLATIN
     Indication: OROPHARYNGEAL CANCER
     Dosage: 434.40 MG, QCYCLE
     Route: 042
     Dates: start: 20140220, end: 20140421

REACTIONS (5)
  - Mucosal inflammation [Recovered/Resolved]
  - Dysphagia [Recovered/Resolved]
  - Dry mouth [Recovering/Resolving]
  - Candida infection [Recovered/Resolved]
  - Oral disorder [Recovered/Resolved]

NARRATIVE: CASE EVENT DATE: 20140623
